FAERS Safety Report 16328565 (Version 2)
Quarter: 2019Q2

REPORT INFORMATION
  Report Type: Spontaneous
  Country: HU (occurrence: HU)
  Receive Date: 20190518
  Receipt Date: 20190518
  Transmission Date: 20190711
  Serious: Yes (Other)
  Sender: FDA-Public Use
  Company Number: PHHY2019HU109938

PATIENT
  Age: 7 Year
  Sex: Male

DRUGS (2)
  1. TOBRAMYCIN AND DEXAMETHASONE [Suspect]
     Active Substance: DEXAMETHASONE\TOBRAMYCIN
     Indication: EYE ALLERGY
     Dosage: UNK
     Route: 047
  2. DEXAMETHASONE. [Suspect]
     Active Substance: DEXAMETHASONE
     Indication: EYE ALLERGY
     Dosage: UNK
     Route: 061

REACTIONS (3)
  - Off label use [Unknown]
  - Glaucoma [Recovering/Resolving]
  - Cataract [Recovering/Resolving]
